FAERS Safety Report 7811883-7 (Version None)
Quarter: 2011Q4

REPORT INFORMATION
  Report Type: 
  Country: None (occurrence: None)
  Receive Date: 20111013
  Receipt Date: 20111007
  Transmission Date: 20120403
  Serious: Yes (Other)
  Sender: FDA-Public Use
  Company Number: PHHY2011CA88520

PATIENT
  Sex: Female

DRUGS (1)
  1. ZOLEDRONOC ACID [Suspect]
     Indication: OSTEOPOROSIS
     Dosage: UNK
     Route: 042
     Dates: start: 20100720

REACTIONS (6)
  - TACHYCARDIA [None]
  - MYALGIA [None]
  - DIARRHOEA [None]
  - CHILLS [None]
  - PALPITATIONS [None]
  - HEADACHE [None]
